FAERS Safety Report 11247872 (Version 1)
Quarter: 2015Q3

REPORT INFORMATION
  Report Type: Spontaneous
  Country: BR (occurrence: BR)
  Receive Date: 20150708
  Receipt Date: 20150708
  Transmission Date: 20151125
  Serious: Yes (Other)
  Sender: FDA-Public Use
  Company Number: BR-SA-2015SA096255

PATIENT
  Age: 71 Year
  Sex: Male
  Weight: 105 kg

DRUGS (2)
  1. AUTOPEN 24 [Concomitant]
     Active Substance: DEVICE
     Dates: start: 2010
  2. LANTUS [Suspect]
     Active Substance: INSULIN GLARGINE
     Indication: DIABETES MELLITUS
     Route: 058
     Dates: start: 1992

REACTIONS (9)
  - Fatigue [Unknown]
  - Malaise [Not Recovered/Not Resolved]
  - Erysipelas [Not Recovered/Not Resolved]
  - Pulmonary pain [Unknown]
  - Cardiac disorder [Unknown]
  - Decreased appetite [Not Recovered/Not Resolved]
  - Cough [Unknown]
  - Pyrexia [Not Recovered/Not Resolved]
  - Erythema [Not Recovered/Not Resolved]
